FAERS Safety Report 5531995-0 (Version None)
Quarter: 2007Q4

REPORT INFORMATION
  Report Type: 
  Country: None (occurrence: None)
  Receive Date: 20071203
  Receipt Date: 20071122
  Transmission Date: 20080405
  Serious: Yes (Death)
  Sender: FDA-Public Use
  Company Number: GB-PURDUE-GBR_2007_0003498

PATIENT
  Age: 68 Year
  Sex: Male

DRUGS (4)
  1. OXYCONTIN [Suspect]
     Indication: PAIN
     Dosage: 5 MG, BID
     Dates: start: 20040205, end: 20040215
  2. DIGOXIN [Concomitant]
     Indication: HEART RATE ABNORMAL
     Dosage: 1 MG, DAILY
  3. LEVOTHYROXINE SODIUM [Concomitant]
     Indication: THYROID DISORDER
     Dosage: .25 MG, DAILY
  4. DEXAMETHASONE [Concomitant]
     Indication: RENAL FAILURE
     Dosage: 40 MG, DAILY

REACTIONS (1)
  - DEATH [None]
